FAERS Safety Report 14109737 (Version 1)
Quarter: 2017Q4

REPORT INFORMATION
  Report Type: Spontaneous
  Country: CN (occurrence: CN)
  Receive Date: 20171020
  Receipt Date: 20171020
  Transmission Date: 20180321
  Serious: Yes (Hospitalization)
  Sender: FDA-Public Use
  Company Number: CN-BAXTER-2017BAX035606

PATIENT
  Age: 86 Year
  Sex: Male
  Weight: 50 kg

DRUGS (3)
  1. LENTINAN INJECTION [Suspect]
     Active Substance: LENTINAN
     Indication: GENERAL PHYSICAL HEALTH DETERIORATION
  2. 5% GLUCOSE  INJECTION [Suspect]
     Active Substance: DEXTROSE
     Indication: MEDICATION DILUTION
     Route: 040
     Dates: start: 20170725, end: 20170726
  3. LENTINAN INJECTION [Suspect]
     Active Substance: LENTINAN
     Indication: RENAL CANCER
     Route: 040
     Dates: start: 20170725, end: 20170726

REACTIONS (3)
  - Pain [Recovering/Resolving]
  - Bone pain [Recovering/Resolving]
  - Arthralgia [Recovering/Resolving]

NARRATIVE: CASE EVENT DATE: 20170725
